FAERS Safety Report 16681964 (Version 2)
Quarter: 2019Q4

REPORT INFORMATION
  Report Type: Report from Study
  Country: None (occurrence: KR)
  Receive Date: 20190808
  Receipt Date: 20191204
  Transmission Date: 20200122
  Serious: Yes (Hospitalization)
  Sender: FDA-Public Use
  Company Number: KR-ABBVIE-19K-090-2878942-00

PATIENT
  Age: 47 Year
  Sex: Male
  Weight: 50 kg

DRUGS (2)
  1. MAVIRET [Suspect]
     Active Substance: GLECAPREVIR\PIBRENTASVIR
     Route: 048
     Dates: start: 20190718
  2. MAVIRET [Suspect]
     Active Substance: GLECAPREVIR\PIBRENTASVIR
     Indication: CHRONIC HEPATITIS C
     Route: 048
     Dates: start: 20190529, end: 20190625

REACTIONS (1)
  - Humerus fracture [Recovering/Resolving]

NARRATIVE: CASE EVENT DATE: 20190706
